FAERS Safety Report 5475266-X (Version None)
Quarter: 2007Q3

REPORT INFORMATION
  Report Type: 
  Country: None (occurrence: None)
  Receive Date: 20070928
  Receipt Date: 20070912
  Transmission Date: 20080115
  Serious: Yes (Life-Threatening, Hospitalization, Other)
  Sender: FDA-Public Use
  Company Number: 2007080033

PATIENT
  Age: 14 Year
  Sex: Female
  Weight: 56.7 kg

DRUGS (7)
  1. FELBATOL [Suspect]
     Indication: STATUS EPILEPTICUS
     Dosage: 3600 MG (1200 MG, 3 IN 1 D)
     Dates: start: 20060606, end: 20060702
  2. TOPAMAX [Suspect]
     Indication: STATUS EPILEPTICUS
     Dates: start: 20060715, end: 20061001
  3. PHENOBARBITAL TAB [Concomitant]
  4. KEPPRA [Concomitant]
  5. DILANTIN [Concomitant]
  6. PENTOBARBITAL CAP [Concomitant]
  7. VALPROIC ACID [Concomitant]

REACTIONS (8)
  - APLASTIC ANAEMIA [None]
  - BODY TEMPERATURE DECREASED [None]
  - HEART RATE INCREASED [None]
  - INFECTION [None]
  - PANCYTOPENIA [None]
  - PLATELET COUNT INCREASED [None]
  - RESPIRATORY RATE INCREASED [None]
  - WHITE BLOOD CELL COUNT INCREASED [None]
